FAERS Safety Report 5531417-X (Version None)
Quarter: 2007Q4

REPORT INFORMATION
  Report Type: 
  Country: None (occurrence: None)
  Receive Date: 20071203
  Receipt Date: 20071127
  Transmission Date: 20080405
  Serious: Yes (Death, Other)
  Sender: FDA-Public Use
  Company Number: DE-BRISTOL-MYERS SQUIBB COMPANY-13987920

PATIENT
  Age: 32 Year
  Sex: Female

DRUGS (5)
  1. METHOTREXATE [Suspect]
     Indication: BURKITT'S LYMPHOMA
     Dosage: 1 DOSAGE FORM=1.5G/M2. ALSO TAKEN INTRATHECALLY (15 MG)
     Route: 042
  2. IFOSFAMIDE [Suspect]
     Indication: BURKITT'S LYMPHOMA
  3. VINCRISTINE [Suspect]
     Indication: BURKITT'S LYMPHOMA
     Route: 048
  4. DEXAMETHASONE [Suspect]
     Indication: BURKITT'S LYMPHOMA
  5. CYTARABINE [Suspect]
     Indication: BURKITT'S LYMPHOMA

REACTIONS (2)
  - BURKITT'S LYMPHOMA RECURRENT [None]
  - TOXIC ENCEPHALOPATHY [None]
